FAERS Safety Report 17825517 (Version 1)
Quarter: 2020Q2

REPORT INFORMATION
  Report Type: Spontaneous
  Country: FR (occurrence: FR)
  Receive Date: 20200526
  Receipt Date: 20200526
  Transmission Date: 20200714
  Serious: Yes (Other)
  Sender: FDA-Public Use
  Company Number: FR-PFIZER INC-2020206950

PATIENT
  Age: 29 Year
  Sex: Female

DRUGS (3)
  1. HAVLANE [Suspect]
     Active Substance: LOPRAZOLAM
     Indication: DRUG ABUSE
     Dosage: UNK (UNSPECIFIED)
  2. ALPRAZOLAM. [Suspect]
     Active Substance: ALPRAZOLAM
     Indication: DRUG ABUSE
     Dosage: UNK (UNSPECIFIED)
     Dates: start: 202003
  3. ZOLPIDEM [Suspect]
     Active Substance: ZOLPIDEM TARTRATE
     Indication: DRUG ABUSE
     Dosage: UNK (UNSPECIFIED)
     Dates: start: 202003

REACTIONS (1)
  - Drug abuse [Not Recovered/Not Resolved]
